FAERS Safety Report 23677684 (Version 1)
Quarter: 2024Q1

REPORT INFORMATION
  Report Type: Spontaneous
  Country: GB (occurrence: GB)
  Receive Date: 20240327
  Receipt Date: 20240327
  Transmission Date: 20240410
  Serious: Yes (Hospitalization)
  Sender: FDA-Public Use
  Company Number: GB-GERMAN-LIT/GBR/24/0004781

PATIENT
  Age: 21 Year
  Sex: Female

DRUGS (1)
  1. FINGOLIMOD [Suspect]
     Active Substance: FINGOLIMOD
     Indication: Relapsing-remitting multiple sclerosis

REACTIONS (2)
  - Cryptococcal meningoencephalitis [Recovering/Resolving]
  - Sinus tachycardia [Recovering/Resolving]
